FAERS Safety Report 8613849-6 (Version None)
Quarter: 2012Q3

REPORT INFORMATION
  Report Type: 
  Country: None (occurrence: None)
  Receive Date: 20120823
  Receipt Date: 20120809
  Transmission Date: 20120928
  Serious: Yes (Hospitalization, Disabling, Other)
  Sender: FDA-Public Use
  Company Number: US-009507513-1201USA00795

PATIENT

DRUGS (13)
  1. ACTONEL [Suspect]
     Indication: OSTEOPOROSIS PROPHYLAXIS
     Dosage: 75 MG, UNK
     Route: 048
     Dates: start: 20070601, end: 20080101
  2. CALCIUM (UNSPECIFIED) [Concomitant]
     Dosage: 600 MG, QD
     Dates: start: 19820101
  3. VITAMINS (UNSPECIFIED) [Concomitant]
     Dosage: 1 UNK, QD
     Dates: start: 19820101
  4. FOSAMAX [Suspect]
     Indication: OSTEOPOROSIS PROPHYLAXIS
     Dosage: 10 MG, UNK
     Route: 048
     Dates: start: 19990701, end: 20020101
  5. ACTONEL [Suspect]
     Dosage: 150 MG, UNK
     Route: 048
     Dates: start: 20080601, end: 20100201
  6. NEXIUM [Concomitant]
     Dosage: UNK
     Dates: start: 20020101, end: 20110101
  7. FOSAMAX [Suspect]
     Dosage: 70 MG, UNK
     Route: 048
     Dates: start: 20020101, end: 20060601
  8. CORTICOSTEROIDS (UNSPECIFIED) [Concomitant]
     Dosage: UNK
     Dates: end: 20110915
  9. ENBREL [Concomitant]
     Indication: RHEUMATOID ARTHRITIS
     Dosage: UNK
     Dates: start: 20010101, end: 20080101
  10. AMITRIPTYLINE HCL [Concomitant]
     Indication: DEPRESSION
     Dosage: UNK
     Dates: start: 19980101
  11. CELEBREX [Concomitant]
     Indication: RHEUMATOID ARTHRITIS
     Dosage: UNK
     Dates: start: 19990101, end: 20090101
  12. FOSAMAX PLUS D [Suspect]
     Indication: OSTEOPOROSIS PROPHYLAXIS
     Dosage: 70 MG, UNK
     Dates: start: 20060601, end: 20070601
  13. ASCORBIC ACID [Concomitant]
     Dosage: 50000 IU, QD
     Dates: start: 19820101

REACTIONS (19)
  - BLOOD CHOLESTEROL INCREASED [None]
  - BONE DENSITY DECREASED [None]
  - FRACTURE NONUNION [None]
  - INTRAMEDULLARY ROD INSERTION [None]
  - HYSTERECTOMY [None]
  - PAIN [None]
  - BIOPSY LYMPH GLAND [None]
  - GASTROOESOPHAGEAL REFLUX DISEASE [None]
  - REVISION OF INTERNAL FIXATION [None]
  - ORAL SURGERY [None]
  - THORACOTOMY [None]
  - HYPERTENSION [None]
  - LUNG ADENOCARCINOMA [None]
  - MEDIASTINOSCOPY [None]
  - PELVIC FRACTURE [None]
  - BIOPSY LUNG [None]
  - FEMUR FRACTURE [None]
  - DEVICE FAILURE [None]
  - URINARY TRACT INFECTION [None]
